FAERS Safety Report 11002688 (Version 1)
Quarter: 2015Q2

REPORT INFORMATION
  Report Type: Spontaneous
  Country: US (occurrence: US)
  Receive Date: 20150408
  Receipt Date: 20150408
  Transmission Date: 20150821
  Serious: Yes (Hospitalization, Disabling)
  Sender: FDA-Public Use
  Company Number: US-ABBVIE-15P-163-1370301-00

PATIENT
  Sex: Male

DRUGS (1)
  1. ANDROGEL [Suspect]
     Active Substance: TESTOSTERONE
     Indication: ANDROGEN REPLACEMENT THERAPY
     Route: 062
     Dates: start: 200804, end: 20130818

REACTIONS (6)
  - Deep vein thrombosis [Unknown]
  - Deep vein thrombosis [Unknown]
  - Pulmonary embolism [Unknown]
  - Disability [Unknown]
  - Pulmonary embolism [Unknown]
  - Economic problem [Unknown]

NARRATIVE: CASE EVENT DATE: 20130413
